FAERS Safety Report 23835591 (Version 2)
Quarter: 2024Q2

REPORT INFORMATION
  Report Type: Spontaneous
  Country: IL (occurrence: IL)
  Receive Date: 20240509
  Receipt Date: 20240521
  Transmission Date: 20240716
  Serious: Yes (Other)
  Sender: FDA-Public Use
  Company Number: IL-ALKEM LABORATORIES LIMITED-IL-ALKEM-2024-09396

PATIENT
  Age: 32 Year
  Sex: Female

DRUGS (2)
  1. AZATHIOPRINE [Suspect]
     Active Substance: AZATHIOPRINE
     Indication: Crohn^s disease
     Dosage: 125 MILLIGRAM
     Route: 065
  2. URSODIOL [Suspect]
     Active Substance: URSODIOL
     Indication: Product used for unknown indication
     Dosage: UNK, QD (UP TO 2700 MG PER DAY)
     Route: 065

REACTIONS (3)
  - Cholestasis of pregnancy [Unknown]
  - Exposure during pregnancy [Unknown]
  - Therapy non-responder [Unknown]
